FAERS Safety Report 5658762-1 (Version None)
Quarter: 2008Q1

REPORT INFORMATION
  Report Type: 
  Country: None (occurrence: None)
  Receive Date: 20080310
  Receipt Date: 20070415
  Transmission Date: 20080703
  Serious: No
  Sender: FDA-Public Use
  Company Number: US-BAYER-200711123BCC

PATIENT
  Age: 19 Year
  Sex: Male
  Weight: 79 kg

DRUGS (1)
  1. ALEVE [Suspect]
     Indication: DRUG USE FOR UNKNOWN INDICATION
     Dosage: AS USED: 440/660 MG  UNIT DOSE: 220 MG
     Route: 048
     Dates: start: 20070415

REACTIONS (2)
  - INTENTIONAL OVERDOSE [None]
  - NO ADVERSE EVENT [None]
